FAERS Safety Report 5018787-6 (Version None)
Quarter: 2006Q2

REPORT INFORMATION
  Report Type: 
  Country: None (occurrence: None)
  Receive Date: 20060606
  Receipt Date: 20050901
  Transmission Date: 20061013
  Serious: Yes (Other)
  Sender: FDA-Public Use
  Company Number: US-AMGEN-US148775

PATIENT
  Sex: Male

DRUGS (1)
  1. ENBREL [Suspect]
     Indication: PSORIASIS
     Dates: start: 20040101, end: 20041201

REACTIONS (4)
  - ARTHRITIS [None]
  - ASTHENIA [None]
  - DIFFICULTY IN WALKING [None]
  - HYPOAESTHESIA [None]
